FAERS Safety Report 13459606 (Version 1)
Quarter: 2017Q2

REPORT INFORMATION
  Report Type: Spontaneous
  Country: US (occurrence: US)
  Receive Date: 20170419
  Receipt Date: 20170419
  Transmission Date: 20170830
  Serious: Yes (Hospitalization, Other)
  Sender: FDA-Public Use
  Company Number: PHHY2017US054516

PATIENT
  Age: 52 Year
  Sex: Male

DRUGS (1)
  1. OLANZAPINE. [Suspect]
     Active Substance: OLANZAPINE
     Indication: AGITATION
     Dosage: 10 MG,
     Route: 030

REACTIONS (4)
  - Pneumonia aspiration [Unknown]
  - Respiratory depression [Unknown]
  - Apnoea [Unknown]
  - Hypoxia [Unknown]
